FAERS Safety Report 10224148 (Version 1)
Quarter: 2014Q2

REPORT INFORMATION
  Report Type: Report from Study
  Country: US (occurrence: US)
  Receive Date: 20140609
  Receipt Date: 20140609
  Transmission Date: 20141212
  Serious: Yes (Death)
  Sender: FDA-Public Use
  Company Number: PHEH2014US011278

PATIENT
  Sex: Male

DRUGS (27)
  1. TASIGNA [Suspect]
     Indication: CHRONIC MYELOID LEUKAEMIA
     Dosage: 300 MG, BID
     Route: 048
     Dates: start: 20101112
  2. NOVOLOG [Concomitant]
  3. LEVEMIR [Concomitant]
  4. PREDNISONE [Concomitant]
  5. HEMAX                              /03309701/ [Concomitant]
  6. SIMVASTATIN [Concomitant]
  7. ATACAND [Concomitant]
  8. LASIX [Concomitant]
  9. SPIRIVA [Concomitant]
  10. ADVAIR [Concomitant]
  11. RECLAST [Concomitant]
  12. CALCIUM [Concomitant]
  13. VITAMIN D [Concomitant]
  14. VITAMIN B12 [Concomitant]
  15. METAMUCIL [Concomitant]
  16. PERCOCET [Concomitant]
  17. CIPRO ^MILES^ [Concomitant]
  18. SENOKOT                                 /UNK/ [Concomitant]
  19. FLOMAX [Concomitant]
  20. NOVOLIN [Concomitant]
  21. LIDODERM [Concomitant]
  22. PRILOSEC [Concomitant]
  23. ALBUTEROL [Concomitant]
  24. DILAUDID [Concomitant]
  25. HYDRALAZINE [Concomitant]
  26. TYLENOL [Concomitant]
  27. NEURONTIN [Concomitant]

REACTIONS (1)
  - Death [Fatal]
